FAERS Safety Report 5676091-7 (Version None)
Quarter: 2008Q1

REPORT INFORMATION
  Report Type: 
  Country: None (occurrence: None)
  Receive Date: 20080321
  Receipt Date: 20080317
  Transmission Date: 20080703
  Serious: Yes (Other)
  Sender: FDA-Public Use
  Company Number: PT-JNJFOC-20080304792

PATIENT
  Sex: Female
  Weight: 48 kg

DRUGS (3)
  1. TOPIRAMATE [Suspect]
     Indication: ANXIETY
     Route: 048
     Dates: start: 20080108, end: 20080118
  2. TRAZODONE HCL [Concomitant]
     Route: 048
     Dates: start: 20080108, end: 20080118
  3. FLUOXETINE [Concomitant]
     Route: 048
     Dates: start: 20080108, end: 20080118

REACTIONS (1)
  - ANGLE CLOSURE GLAUCOMA [None]
